FAERS Safety Report 8514728-5 (Version None)
Quarter: 2012Q3

REPORT INFORMATION
  Report Type: 
  Country: None (occurrence: None)
  Receive Date: 20120717
  Receipt Date: 20120211
  Transmission Date: 20120928
  Serious: No
  Sender: FDA-Public Use
  Company Number: US-COVIDIEN/TYCO HEALTHCARE/MALLINCKRODT-T201200612

PATIENT
  Age: 58 Year
  Sex: Female
  Weight: 48.526 kg

DRUGS (3)
  1. LISINOPRIL [Concomitant]
     Indication: BLOOD PRESSURE
     Dosage: UNK
  2. MORPHINE [Suspect]
     Indication: BACK PAIN
     Dosage: 30 MG, Q 12 HRS
     Route: 048
     Dates: start: 20120210
  3. LOVASTATIN [Concomitant]
     Indication: BLOOD CHOLESTEROL
     Dosage: UNK

REACTIONS (2)
  - DRUG INEFFECTIVE [None]
  - INCORRECT DOSE ADMINISTERED [None]
